FAERS Safety Report 25611493 (Version 1)
Quarter: 2025Q3

REPORT INFORMATION
  Report Type: Spontaneous
  Country: US (occurrence: None)
  Receive Date: 20250725
  Receipt Date: 20250725
  Transmission Date: 20251021
  Serious: Yes (Life-Threatening, Other)
  Sender: FDA-CTU
  Company Number: None

PATIENT
  Age: 25 Year
  Sex: Male
  Weight: 74.25 kg

DRUGS (5)
  1. QELBREE [Suspect]
     Active Substance: VILOXAZINE HYDROCHLORIDE
     Indication: Attention deficit hyperactivity disorder
     Dosage: 30 CAPSULE(S) DAILY ORAL
     Route: 048
     Dates: start: 20250501, end: 20250722
  2. Lithium 450mg BID [Concomitant]
  3. VRAYLAR [Concomitant]
     Active Substance: CARIPRAZINE
  4. ADZENYS ER [Concomitant]
     Active Substance: AMPHETAMINE
  5. BUPROPION [Concomitant]
     Active Substance: BUPROPION

REACTIONS (12)
  - Withdrawal syndrome [None]
  - Product use issue [None]
  - Migraine [None]
  - Gait inability [None]
  - Impaired driving ability [None]
  - Eyelid function disorder [None]
  - Impaired work ability [None]
  - Haematemesis [None]
  - Incontinence [None]
  - Nausea [None]
  - Product odour abnormal [None]
  - Product contamination chemical [None]

NARRATIVE: CASE EVENT DATE: 20250722
